FAERS Safety Report 21114286 (Version 1)
Quarter: 2022Q3

REPORT INFORMATION
  Report Type: Spontaneous
  Country: US (occurrence: US)
  Receive Date: 20220721
  Receipt Date: 20220721
  Transmission Date: 20221026
  Serious: Yes (Other)
  Sender: FDA-Public Use
  Company Number: US-PARI RESPIRATORY EQUIPMENT, INC.-2022PAR00047

PATIENT
  Sex: Female

DRUGS (6)
  1. KITABIS PAK [Suspect]
     Active Substance: TOBRAMYCIN
     Indication: Cystic fibrosis
     Dosage: 300 MG/5 ML (1 VIAL), 2X/DAY FOR 28 DAYS ON AND 28 DAYS OFF
     Dates: start: 20200218
  2. KITABIS PAK [Suspect]
     Active Substance: TOBRAMYCIN
     Indication: Lung disorder
  3. MVW COMPLETE D5000 [Concomitant]
  4. MVW D5000 [Concomitant]
  5. SYNAGIS [Concomitant]
     Active Substance: PALIVIZUMAB
  6. TRIKAFTA [Concomitant]
     Active Substance: ELEXACAFTOR\IVACAFTOR\TEZACAFTOR

REACTIONS (4)
  - Pseudomonas infection [Unknown]
  - Cough [Unknown]
  - Dysphonia [Unknown]
  - Product dose omission issue [Unknown]
